FAERS Safety Report 10431470 (Version 2)
Quarter: 2015Q2

REPORT INFORMATION
  Report Type: Spontaneous
  Country: US (occurrence: None)
  Receive Date: 20140903
  Receipt Date: 20150415
  Transmission Date: 20150821
  Serious: Yes (Hospitalization, Disabling, Other)
  Sender: FDA-Public Use
  Company Number: CC14-1269

PATIENT
  Age: 86 Year
  Sex: Male

DRUGS (2)
  1. SALT EYE DROPS [Concomitant]
  2. METRONIDAZOLE. [Suspect]
     Active Substance: METRONIDAZOLE
     Indication: ROSACEA
     Dates: start: 201408

REACTIONS (6)
  - Visual acuity reduced [None]
  - Eye swelling [None]
  - Corneal disorder [None]
  - Blindness [None]
  - Eye pain [None]
  - Accidental exposure to product [None]

NARRATIVE: CASE EVENT DATE: 20140804
